FAERS Safety Report 5738813-6 (Version None)
Quarter: 2008Q2

REPORT INFORMATION
  Report Type: 
  Country: None (occurrence: None)
  Receive Date: 20080515
  Receipt Date: 20080414
  Transmission Date: 20081010
  Serious: No
  Sender: FDA-Public Use
  Company Number: A0716196A

PATIENT
  Age: 42 Year
  Sex: Female
  Weight: 91.4 kg

DRUGS (1)
  1. VERAMYST [Suspect]
     Route: 045

REACTIONS (2)
  - BLOOD PRESSURE DECREASED [None]
  - DIZZINESS [None]
